FAERS Safety Report 6199137-9 (Version None)
Quarter: 2009Q2

REPORT INFORMATION
  Report Type: 
  Country: None (occurrence: None)
  Receive Date: 20090522
  Receipt Date: 20090515
  Transmission Date: 20091009
  Serious: Yes (Disabling)
  Sender: FDA-Public Use
  Company Number: CH-ROCHE-631449

PATIENT
  Age: 80 Year
  Sex: Female
  Weight: 58 kg

DRUGS (4)
  1. BONIVA [Suspect]
     Indication: OSTEOPOROSIS
     Dosage: FORMULATION: FILM COATED, DURATION OF USE: YEAR(S) STOP DATE: 2009
     Route: 048
     Dates: start: 20070101
  2. METHOTREXATE [Interacting]
     Indication: RHEUMATOID ARTHRITIS
     Dosage: FREQUENCY: PER WEEK(S), DURATION OF USE: LONG TERM.
     Route: 048
  3. PREDNISONE [Concomitant]
     Route: 048
  4. LEUCOVORIN CALCIUM [Concomitant]
     Dosage: DURATION OF USE: LONG TERM

REACTIONS (3)
  - DRUG INTERACTION [None]
  - OSTEOMYELITIS [None]
  - OSTEONECROSIS [None]
